FAERS Safety Report 9372963 (Version 1)
Quarter: 2013Q2

REPORT INFORMATION
  Report Type: Spontaneous
  Country: IT (occurrence: None)
  Receive Date: 20130624
  Receipt Date: 20130624
  Transmission Date: 20140414
  Serious: Yes (Other)
  Sender: FDA-Public Use
  Company Number: GER/ITL/13/0030029

PATIENT
  Age: 42 Year
  Sex: Male

DRUGS (3)
  1. LEVETIRACETAM (LEVETIRACETAM) [Suspect]
     Indication: EPILEPSY
     Dosage: 3000 MG, 1 IN 1 D, ORAL
     Route: 048
     Dates: start: 20130110, end: 20130120
  2. TOPIRAMATE (TOPIRAMATE) [Concomitant]
  3. PHENOBARBITAL (PHENOBARBITAL) [Concomitant]

REACTIONS (2)
  - Therapeutic response unexpected with drug substitution [None]
  - Epilepsy [None]
